FAERS Safety Report 8530701-5 (Version None)
Quarter: 2012Q3

REPORT INFORMATION
  Report Type: 
  Country: None (occurrence: None)
  Receive Date: 20120723
  Receipt Date: 20120717
  Transmission Date: 20120928
  Serious: Yes (Death, Hospitalization)
  Sender: FDA-Public Use
  Company Number: GB-ROCHE-1084263

PATIENT

DRUGS (3)
  1. LUCENTIS [Suspect]
     Indication: AGE-RELATED MACULAR DEGENERATION
     Route: 050
     Dates: start: 20101101
  2. LUCENTIS [Suspect]
     Dates: start: 20120501
  3. LUCENTIS [Suspect]
     Dates: start: 20110501

REACTIONS (2)
  - PNEUMONIA [None]
  - VASCULAR DEMENTIA [None]
